FAERS Safety Report 7072353-X (Version None)
Quarter: 2010Q4

REPORT INFORMATION
  Report Type: 
  Country: None (occurrence: None)
  Receive Date: 20101029
  Receipt Date: 20100115
  Transmission Date: 20110411
  Serious: No
  Sender: FDA-Public Use
  Company Number: A0839739A

PATIENT
  Age: 59 Year
  Sex: Female

DRUGS (7)
  1. ADVAIR DISKUS 100/50 [Suspect]
     Indication: ASTHMA
     Dosage: 1PUFF TWICE PER DAY
     Route: 055
     Dates: start: 20050101
  2. ADVAIR DISKUS 100/50 [Suspect]
     Route: 055
     Dates: start: 20100101
  3. SINGULAIR [Concomitant]
  4. ZYRTEC [Concomitant]
  5. ALBUTEROL [Concomitant]
  6. BENADRYL [Concomitant]
  7. PREDNISONE [Concomitant]

REACTIONS (5)
  - CARDIAC DISORDER [None]
  - DYSPHONIA [None]
  - HEART RATE INCREASED [None]
  - HEART RATE IRREGULAR [None]
  - MUSCLE SPASMS [None]
